FAERS Safety Report 8242730-X (Version None)
Quarter: 2012Q1

REPORT INFORMATION
  Report Type: 
  Country: None (occurrence: None)
  Receive Date: 20120329
  Receipt Date: 20120320
  Transmission Date: 20120608
  Serious: Yes (Life-Threatening, Hospitalization)
  Sender: FDA-Public Use
  Company Number: US-BAYER-2011-120214

PATIENT
  Age: 44 Year
  Sex: Female
  Weight: 60.317 kg

DRUGS (2)
  1. IBUPROFEN [Concomitant]
  2. YASMIN [Suspect]
     Indication: CONTRACEPTION
     Dosage: UNK
     Dates: start: 20090220, end: 20090902

REACTIONS (9)
  - ANXIETY [None]
  - FEAR [None]
  - CHOLECYSTECTOMY [None]
  - PAIN [None]
  - CHOLELITHIASIS [None]
  - EMOTIONAL DISTRESS [None]
  - PULMONARY HYPERTENSION [None]
  - PULMONARY EMBOLISM [None]
  - ANHEDONIA [None]
